FAERS Safety Report 23380682 (Version 1)
Quarter: 2024Q1

REPORT INFORMATION
  Report Type: Spontaneous
  Country: IE (occurrence: IE)
  Receive Date: 20240109
  Receipt Date: 20240109
  Transmission Date: 20240410
  Serious: Yes (Death, Other)
  Sender: FDA-Public Use
  Company Number: IE-CELLTRION HEALTHCARE HUNGARY KFT-2023IE017455

PATIENT
  Age: 71 Year
  Sex: Female

DRUGS (1)
  1. ADALIMUMAB [Suspect]
     Active Substance: ADALIMUMAB\ISOPROPYL ALCOHOL
     Indication: Psoriasis
     Route: 058

REACTIONS (1)
  - Ovarian cancer [Fatal]
